FAERS Safety Report 23316131 (Version 62)
Quarter: 2025Q1

REPORT INFORMATION
  Report Type: Spontaneous
  Country: CA (occurrence: CA)
  Receive Date: 20231219
  Receipt Date: 20250317
  Transmission Date: 20250409
  Serious: Yes (Death, Life-Threatening, Hospitalization, Disabling, Congenital Anomaly, Other)
  Sender: PFIZER
  Company Number: CA-PFIZER INC-202300446523

PATIENT
  Age: 43 Year
  Sex: Female
  Weight: 96 kg

DRUGS (753)
  1. ENBREL [Suspect]
     Active Substance: ETANERCEPT
     Indication: Psoriatic arthropathy
     Dosage: 50 MILLIGRAM, QWK
     Route: 058
  2. ENBREL [Suspect]
     Active Substance: ETANERCEPT
     Indication: Rheumatoid arthritis
  3. ENBREL [Suspect]
     Active Substance: ETANERCEPT
     Dosage: 1 DF, WEEKLY
  4. ENBREL [Suspect]
     Active Substance: ETANERCEPT
     Dosage: 25 MG, 1X/DAY
     Route: 048
  5. ENBREL [Suspect]
     Active Substance: ETANERCEPT
  6. ENBREL [Suspect]
     Active Substance: ETANERCEPT
     Dosage: 50 MG, WEEKLY
     Route: 058
  7. ENBREL [Suspect]
     Active Substance: ETANERCEPT
     Dosage: 25 MG, 1X/DAY
  8. ENBREL [Suspect]
     Active Substance: ETANERCEPT
     Dosage: 50 MG, WEEKLY
     Route: 058
  9. ENBREL [Suspect]
     Active Substance: ETANERCEPT
  10. ENBREL [Suspect]
     Active Substance: ETANERCEPT
  11. ENBREL [Suspect]
     Active Substance: ETANERCEPT
  12. ENBREL [Suspect]
     Active Substance: ETANERCEPT
     Dosage: 50 MG, WEEKLY
     Route: 058
  13. ENBREL [Suspect]
     Active Substance: ETANERCEPT
  14. ENBREL [Suspect]
     Active Substance: ETANERCEPT
     Dosage: 50 MG, WEEKLY
     Route: 058
  15. ENBREL [Suspect]
     Active Substance: ETANERCEPT
     Route: 058
  16. ENBREL [Suspect]
     Active Substance: ETANERCEPT
     Route: 058
  17. ENBREL [Suspect]
     Active Substance: ETANERCEPT
     Route: 058
  18. ENBREL [Suspect]
     Active Substance: ETANERCEPT
     Dosage: 20 MG, WEEKLY
     Route: 058
  19. ENBREL [Suspect]
     Active Substance: ETANERCEPT
     Route: 058
  20. ENBREL [Suspect]
     Active Substance: ETANERCEPT
     Route: 058
  21. ENBREL [Suspect]
     Active Substance: ETANERCEPT
  22. ENBREL [Suspect]
     Active Substance: ETANERCEPT
     Route: 058
  23. ENBREL [Suspect]
     Active Substance: ETANERCEPT
     Dosage: 50 MG, WEEKLY
  24. ENBREL [Suspect]
     Active Substance: ETANERCEPT
     Dosage: 20 MG, WEEKLY
  25. ENBREL [Suspect]
     Active Substance: ETANERCEPT
     Dosage: 20 MILLIGRAM, QD
     Route: 058
  26. ENBREL [Suspect]
     Active Substance: ETANERCEPT
     Route: 058
  27. ENBREL [Suspect]
     Active Substance: ETANERCEPT
     Dosage: 25 MILLIGRAM, QD
     Route: 048
  28. ENBREL [Suspect]
     Active Substance: ETANERCEPT
     Dosage: 25 MILLIGRAM, QD
     Route: 065
  29. ENBREL [Suspect]
     Active Substance: ETANERCEPT
     Dosage: 50 MILLIGRAM, QD
     Route: 058
  30. ENBREL [Suspect]
     Active Substance: ETANERCEPT
     Route: 058
  31. ENBREL [Suspect]
     Active Substance: ETANERCEPT
     Route: 058
  32. ENBREL [Suspect]
     Active Substance: ETANERCEPT
     Route: 058
  33. ENBREL [Suspect]
     Active Substance: ETANERCEPT
     Route: 065
  34. ENBREL [Suspect]
     Active Substance: ETANERCEPT
     Route: 058
  35. ENBREL [Suspect]
     Active Substance: ETANERCEPT
     Dosage: 1 DOSAGE FORM, QWK
     Route: 065
  36. ENBREL [Suspect]
     Active Substance: ETANERCEPT
     Route: 065
  37. ENBREL [Suspect]
     Active Substance: ETANERCEPT
     Dosage: 20 MILLIGRAM, QWK
     Route: 065
  38. XELJANZ [Suspect]
     Active Substance: TOFACITINIB CITRATE
     Indication: Psoriatic arthropathy
     Dosage: 5 MG, 2X/DAY
  39. XELJANZ [Suspect]
     Active Substance: TOFACITINIB CITRATE
     Dosage: 5 MG, 1X/DAY
     Route: 048
  40. XELJANZ [Suspect]
     Active Substance: TOFACITINIB CITRATE
     Dosage: 5 MG, WEEKLY
     Route: 048
  41. XELJANZ [Suspect]
     Active Substance: TOFACITINIB CITRATE
     Dosage: 5 MG, 1X/DAY
  42. XELJANZ [Suspect]
     Active Substance: TOFACITINIB CITRATE
     Dosage: 10 MG, 1X/DAY
  43. XELJANZ [Suspect]
     Active Substance: TOFACITINIB CITRATE
     Dosage: 5 MG, 2X/DAY
  44. XELJANZ [Suspect]
     Active Substance: TOFACITINIB CITRATE
     Dosage: 5 MG, 2X/DAY
  45. XELJANZ [Suspect]
     Active Substance: TOFACITINIB CITRATE
     Dosage: 5 MG, 2X/DAY
     Route: 048
  46. XELJANZ [Suspect]
     Active Substance: TOFACITINIB CITRATE
  47. XELJANZ [Suspect]
     Active Substance: TOFACITINIB CITRATE
     Dosage: 10 MG, 2X/DAY
     Route: 048
  48. XELJANZ [Suspect]
     Active Substance: TOFACITINIB CITRATE
  49. XELJANZ [Suspect]
     Active Substance: TOFACITINIB CITRATE
     Dosage: 5 MG, WEEKLY
  50. XELJANZ [Suspect]
     Active Substance: TOFACITINIB CITRATE
  51. XELJANZ [Suspect]
     Active Substance: TOFACITINIB CITRATE
     Dosage: 10 MG, 1X/DAY
     Route: 048
  52. XELJANZ [Suspect]
     Active Substance: TOFACITINIB CITRATE
     Dosage: 5 MG, WEEKLY
     Route: 048
  53. XELJANZ [Suspect]
     Active Substance: TOFACITINIB CITRATE
     Dosage: 5 UNK, BID
  54. XELJANZ [Suspect]
     Active Substance: TOFACITINIB CITRATE
  55. XELJANZ [Suspect]
     Active Substance: TOFACITINIB CITRATE
     Dosage: 5 UNK, QD
  56. XELJANZ [Suspect]
     Active Substance: TOFACITINIB CITRATE
     Dosage: 5 MG, 1X/DAY
     Route: 048
  57. XELJANZ [Suspect]
     Active Substance: TOFACITINIB CITRATE
     Dosage: 10 MILLIGRAM, BID
     Route: 048
  58. XELJANZ [Suspect]
     Active Substance: TOFACITINIB CITRATE
     Dosage: 5 MILLIGRAM, BID
     Route: 048
  59. XELJANZ [Suspect]
     Active Substance: TOFACITINIB CITRATE
     Dosage: 10 MILLIGRAM, BID
     Route: 048
  60. INFLIXIMAB [Suspect]
     Active Substance: INFLIXIMAB
     Indication: Rheumatoid arthritis
     Route: 042
  61. INFLIXIMAB [Suspect]
     Active Substance: INFLIXIMAB
  62. INFLIXIMAB [Suspect]
     Active Substance: INFLIXIMAB
  63. INFLIXIMAB [Suspect]
     Active Substance: INFLIXIMAB
     Route: 042
  64. INFLIXIMAB [Suspect]
     Active Substance: INFLIXIMAB
     Route: 065
  65. INFLIXIMAB [Suspect]
     Active Substance: INFLIXIMAB
     Route: 042
  66. INFLIXIMAB [Suspect]
     Active Substance: INFLIXIMAB
     Route: 042
  67. INFLIXIMAB [Suspect]
     Active Substance: INFLIXIMAB
     Route: 065
  68. ADALIMUMAB [Suspect]
     Active Substance: ADALIMUMAB
     Indication: Psoriatic arthropathy
     Route: 058
  69. ADALIMUMAB [Suspect]
     Active Substance: ADALIMUMAB
     Indication: Rheumatoid arthritis
     Route: 065
  70. ADALIMUMAB [Suspect]
     Active Substance: ADALIMUMAB
     Route: 048
  71. ADALIMUMAB [Suspect]
     Active Substance: ADALIMUMAB
     Route: 058
  72. ADALIMUMAB [Suspect]
     Active Substance: ADALIMUMAB
  73. ADALIMUMAB [Suspect]
     Active Substance: ADALIMUMAB
     Route: 058
  74. ADALIMUMAB [Suspect]
     Active Substance: ADALIMUMAB
     Route: 042
  75. ADALIMUMAB [Suspect]
     Active Substance: ADALIMUMAB
     Route: 016
  76. ADALIMUMAB [Suspect]
     Active Substance: ADALIMUMAB
     Route: 058
  77. ADALIMUMAB [Suspect]
     Active Substance: ADALIMUMAB
     Route: 065
  78. BUPIVACAINE HYDROCHLORIDE [Suspect]
     Active Substance: BUPIVACAINE HYDROCHLORIDE
  79. ETHINYL ESTRADIOL\NORETHINDRONE [Suspect]
     Active Substance: ETHINYL ESTRADIOL\NORETHINDRONE
     Route: 048
  80. CELECOXIB [Suspect]
     Active Substance: CELECOXIB
     Indication: Arthritis
     Dosage: UNK, 1X/DAY
     Route: 048
  81. CELECOXIB [Suspect]
     Active Substance: CELECOXIB
     Indication: Rheumatoid arthritis
     Route: 048
  82. CELECOXIB [Suspect]
     Active Substance: CELECOXIB
     Dosage: 2 DF, 1X/DAY
     Route: 048
  83. CELECOXIB [Suspect]
     Active Substance: CELECOXIB
     Dosage: UNK 1 EVERY 1 DAYS
     Route: 048
  84. CELECOXIB [Suspect]
     Active Substance: CELECOXIB
     Dosage: 20 MG, 1X/DAY
     Route: 048
  85. CELECOXIB [Suspect]
     Active Substance: CELECOXIB
     Dosage: UNK, 1X/DAY
  86. CELECOXIB [Suspect]
     Active Substance: CELECOXIB
  87. CELECOXIB [Suspect]
     Active Substance: CELECOXIB
     Route: 048
  88. CELECOXIB [Suspect]
     Active Substance: CELECOXIB
     Route: 058
  89. CELECOXIB [Suspect]
     Active Substance: CELECOXIB
     Dosage: UNK UNK, QD
  90. CELECOXIB [Suspect]
     Active Substance: CELECOXIB
     Route: 048
  91. CELECOXIB [Suspect]
     Active Substance: CELECOXIB
     Dosage: 1 DF, 1X/DAY
     Route: 065
  92. DOXYCYCLINE HYCLATE [Suspect]
     Active Substance: DOXYCYCLINE HYCLATE
  93. HYDROCORTISONE [Suspect]
     Active Substance: HYDROCORTISONE
     Indication: Rheumatoid arthritis
  94. HYDROCORTISONE [Suspect]
     Active Substance: HYDROCORTISONE
     Route: 048
  95. HYDROCORTISONE [Suspect]
     Active Substance: HYDROCORTISONE
     Route: 058
  96. HYDROCORTISONE [Suspect]
     Active Substance: HYDROCORTISONE
     Route: 061
  97. HYDROCORTISONE SODIUM SUCCINATE [Suspect]
     Active Substance: HYDROCORTISONE SODIUM SUCCINATE
     Indication: Rheumatoid arthritis
  98. METHOTREXATE SODIUM [Suspect]
     Active Substance: METHOTREXATE SODIUM
     Indication: Rheumatoid arthritis
     Dosage: 25 MG, 1X/DAY
  99. METHOTREXATE SODIUM [Suspect]
     Active Substance: METHOTREXATE SODIUM
     Dosage: 25 MG QW
     Route: 048
  100. METHOTREXATE SODIUM [Suspect]
     Active Substance: METHOTREXATE SODIUM
     Route: 058
  101. METHOTREXATE SODIUM [Suspect]
     Active Substance: METHOTREXATE SODIUM
     Dosage: 20 MG, 1X/DAY
     Route: 048
  102. METHOTREXATE SODIUM [Suspect]
     Active Substance: METHOTREXATE SODIUM
     Dosage: 2 GRAM, QD
     Route: 048
  103. METHOTREXATE SODIUM [Suspect]
     Active Substance: METHOTREXATE SODIUM
     Dosage: 20 MG, 1X/DAY
     Route: 048
  104. METHOTREXATE SODIUM [Suspect]
     Active Substance: METHOTREXATE SODIUM
     Dosage: 25 MG, WEEKLY
     Route: 013
  105. METHOTREXATE SODIUM [Suspect]
     Active Substance: METHOTREXATE SODIUM
     Dosage: 15 MG, 1X/DAY
  106. METHOTREXATE SODIUM [Suspect]
     Active Substance: METHOTREXATE SODIUM
     Route: 048
  107. METHOTREXATE SODIUM [Suspect]
     Active Substance: METHOTREXATE SODIUM
     Dosage: 20 MG, WEEKLY
     Route: 048
  108. METHOTREXATE SODIUM [Suspect]
     Active Substance: METHOTREXATE SODIUM
     Route: 048
  109. METHOTREXATE SODIUM [Suspect]
     Active Substance: METHOTREXATE SODIUM
     Route: 058
  110. METHOTREXATE SODIUM [Suspect]
     Active Substance: METHOTREXATE SODIUM
     Dosage: 25 MG, 1X/DAY
     Route: 048
  111. METHOTREXATE SODIUM [Suspect]
     Active Substance: METHOTREXATE SODIUM
     Dosage: 1 MG, 1X/DAY
  112. METHOTREXATE SODIUM [Suspect]
     Active Substance: METHOTREXATE SODIUM
     Dosage: 2 DF, 1X/DAY
     Route: 048
  113. METHOTREXATE SODIUM [Suspect]
     Active Substance: METHOTREXATE SODIUM
     Route: 048
  114. METHOTREXATE SODIUM [Suspect]
     Active Substance: METHOTREXATE SODIUM
     Route: 048
  115. METHOTREXATE SODIUM [Suspect]
     Active Substance: METHOTREXATE SODIUM
     Dosage: 15 UNK, QD
  116. METHOTREXATE SODIUM [Suspect]
     Active Substance: METHOTREXATE SODIUM
  117. METHOTREXATE SODIUM [Suspect]
     Active Substance: METHOTREXATE SODIUM
     Dosage: 20 MG, 1X/DAY
     Route: 048
  118. METHOTREXATE SODIUM [Suspect]
     Active Substance: METHOTREXATE SODIUM
     Dosage: 20 MG, 1X/DAY
  119. METHOTREXATE SODIUM [Suspect]
     Active Substance: METHOTREXATE SODIUM
     Dosage: 50 MILLIGRAM, QD
     Route: 048
  120. METHOTREXATE SODIUM [Suspect]
     Active Substance: METHOTREXATE SODIUM
     Route: 048
  121. METHOTREXATE SODIUM [Suspect]
     Active Substance: METHOTREXATE SODIUM
     Route: 013
  122. METHOTREXATE SODIUM [Suspect]
     Active Substance: METHOTREXATE SODIUM
     Dosage: 10 MG, 1X/DAY
  123. METHOTREXATE SODIUM [Suspect]
     Active Substance: METHOTREXATE SODIUM
     Dosage: 25 MG, WEEKLY
  124. METHOTREXATE SODIUM [Suspect]
     Active Substance: METHOTREXATE SODIUM
  125. METHOTREXATE SODIUM [Suspect]
     Active Substance: METHOTREXATE SODIUM
     Route: 048
  126. METHOTREXATE SODIUM [Suspect]
     Active Substance: METHOTREXATE SODIUM
     Dosage: 25 MILLIGRAM, QD
     Route: 065
  127. METHOTREXATE SODIUM [Suspect]
     Active Substance: METHOTREXATE SODIUM
     Dosage: UNK, QD
     Route: 048
  128. METHOTREXATE SODIUM [Suspect]
     Active Substance: METHOTREXATE SODIUM
     Route: 065
  129. METHOTREXATE SODIUM [Suspect]
     Active Substance: METHOTREXATE SODIUM
     Dosage: 15 MG, 1X/DAY
     Route: 065
  130. METHOTREXATE SODIUM [Suspect]
     Active Substance: METHOTREXATE SODIUM
     Dosage: 1 MG, 1X/DAY
     Route: 065
  131. METHOTREXATE SODIUM [Suspect]
     Active Substance: METHOTREXATE SODIUM
     Dosage: 2 DF, 1X/DAY
     Route: 048
  132. METHOTREXATE SODIUM [Suspect]
     Active Substance: METHOTREXATE SODIUM
     Dosage: 25 MG, 1X/DAY
     Route: 065
  133. METHOTREXATE SODIUM [Suspect]
     Active Substance: METHOTREXATE SODIUM
     Route: 048
  134. METHOTREXATE SODIUM [Suspect]
     Active Substance: METHOTREXATE SODIUM
     Route: 048
  135. METHOTREXATE SODIUM [Suspect]
     Active Substance: METHOTREXATE SODIUM
     Route: 048
  136. METHYLPREDNISOLONE SODIUM SUCCINATE [Suspect]
     Active Substance: METHYLPREDNISOLONE SODIUM SUCCINATE
     Route: 065
  137. PREGABALIN [Suspect]
     Active Substance: PREGABALIN
  138. PANTOPRAZOLE [Suspect]
     Active Substance: PANTOPRAZOLE
  139. PANTOPRAZOLE [Suspect]
     Active Substance: PANTOPRAZOLE
  140. PANTOPRAZOLE [Suspect]
     Active Substance: PANTOPRAZOLE
  141. PANTOPRAZOLE [Suspect]
     Active Substance: PANTOPRAZOLE
  142. PANTOPRAZOLE [Suspect]
     Active Substance: PANTOPRAZOLE
  143. PANTOPRAZOLE [Suspect]
     Active Substance: PANTOPRAZOLE
  144. PANTOPRAZOLE [Suspect]
     Active Substance: PANTOPRAZOLE
  145. PANTOPRAZOLE [Suspect]
     Active Substance: PANTOPRAZOLE
  146. PANTOPRAZOLE [Suspect]
     Active Substance: PANTOPRAZOLE
  147. PHENYLEPHRINE HYDROCHLORIDE [Suspect]
     Active Substance: PHENYLEPHRINE HYDROCHLORIDE
     Indication: Rheumatoid arthritis
     Route: 065
  148. PHENYLEPHRINE HYDROCHLORIDE [Suspect]
     Active Substance: PHENYLEPHRINE HYDROCHLORIDE
     Route: 065
  149. PHENYLEPHRINE HYDROCHLORIDE [Suspect]
     Active Substance: PHENYLEPHRINE HYDROCHLORIDE
     Route: 065
  150. PHENYLEPHRINE HYDROCHLORIDE [Suspect]
     Active Substance: PHENYLEPHRINE HYDROCHLORIDE
     Dosage: 1000 MILLIGRAM, BID (1 EVERY 12 HOURS)
     Route: 065
  151. PHENYLEPHRINE HYDROCHLORIDE [Suspect]
     Active Substance: PHENYLEPHRINE HYDROCHLORIDE
     Route: 042
  152. PHENYLEPHRINE HYDROCHLORIDE [Suspect]
     Active Substance: PHENYLEPHRINE HYDROCHLORIDE
     Route: 065
  153. PHENYLEPHRINE HYDROCHLORIDE [Suspect]
     Active Substance: PHENYLEPHRINE HYDROCHLORIDE
     Route: 065
  154. PHENYLEPHRINE HYDROCHLORIDE [Suspect]
     Active Substance: PHENYLEPHRINE HYDROCHLORIDE
     Route: 058
  155. SULFASALAZINE [Suspect]
     Active Substance: SULFASALAZINE
     Indication: Rheumatoid arthritis
     Route: 048
  156. SULFASALAZINE [Suspect]
     Active Substance: SULFASALAZINE
     Dosage: 1000 MG, 2X/DAY
     Route: 048
  157. SULFASALAZINE [Suspect]
     Active Substance: SULFASALAZINE
     Dosage: 1 G, 2X/DAY
  158. SULFASALAZINE [Suspect]
     Active Substance: SULFASALAZINE
     Dosage: 1 G, 1X/DAY
  159. SULFASALAZINE [Suspect]
     Active Substance: SULFASALAZINE
     Route: 065
  160. SULFASALAZINE [Suspect]
     Active Substance: SULFASALAZINE
  161. SULFASALAZINE [Suspect]
     Active Substance: SULFASALAZINE
     Dosage: 1 G, 2X/DAY
  162. SULFASALAZINE [Suspect]
     Active Substance: SULFASALAZINE
     Route: 048
  163. SULFASALAZINE [Suspect]
     Active Substance: SULFASALAZINE
     Dosage: 1 G, 2X/DAY
     Route: 048
  164. SULFASALAZINE [Suspect]
     Active Substance: SULFASALAZINE
  165. SULFASALAZINE [Suspect]
     Active Substance: SULFASALAZINE
     Dosage: 1 G, 1X/DAY
     Route: 048
  166. SULFASALAZINE [Suspect]
     Active Substance: SULFASALAZINE
  167. SULFASALAZINE [Suspect]
     Active Substance: SULFASALAZINE
     Route: 048
  168. SULFASALAZINE [Suspect]
     Active Substance: SULFASALAZINE
     Route: 048
  169. SULFASALAZINE [Suspect]
     Active Substance: SULFASALAZINE
     Dosage: UNK, 1X/DAY
     Route: 048
  170. SULFASALAZINE [Suspect]
     Active Substance: SULFASALAZINE
     Route: 048
  171. SULFASALAZINE [Suspect]
     Active Substance: SULFASALAZINE
     Route: 016
  172. SULFASALAZINE [Suspect]
     Active Substance: SULFASALAZINE
  173. SULFASALAZINE [Suspect]
     Active Substance: SULFASALAZINE
     Route: 048
  174. SULFASALAZINE [Suspect]
     Active Substance: SULFASALAZINE
  175. SULFASALAZINE [Suspect]
     Active Substance: SULFASALAZINE
     Dosage: 300 MG, 1X/DAY
     Route: 048
  176. SULFASALAZINE [Suspect]
     Active Substance: SULFASALAZINE
     Route: 048
  177. SULFASALAZINE [Suspect]
     Active Substance: SULFASALAZINE
     Dosage: 1 G, 1X/DAY
     Route: 058
  178. SULFASALAZINE [Suspect]
     Active Substance: SULFASALAZINE
  179. SULFASALAZINE [Suspect]
     Active Substance: SULFASALAZINE
     Dosage: UNK DOSAGE FORM
     Route: 048
  180. SULFASALAZINE [Suspect]
     Active Substance: SULFASALAZINE
     Dosage: 1 MG, 2X/DAY
  181. SULFASALAZINE [Suspect]
     Active Substance: SULFASALAZINE
     Dosage: 100 MG, 2X/DAY
  182. SULFASALAZINE [Suspect]
     Active Substance: SULFASALAZINE
     Dosage: 1000 MG, 2X/DAY
  183. SULFASALAZINE [Suspect]
     Active Substance: SULFASALAZINE
     Route: 048
  184. SULFASALAZINE [Suspect]
     Active Substance: SULFASALAZINE
     Dosage: 2 MILLIGRAM, BID
     Route: 048
  185. SULFASALAZINE [Suspect]
     Active Substance: SULFASALAZINE
     Route: 048
  186. SULFASALAZINE [Suspect]
     Active Substance: SULFASALAZINE
     Dosage: UNK, 2X/DAY
     Route: 058
  187. SULFASALAZINE [Suspect]
     Active Substance: SULFASALAZINE
     Route: 058
  188. SULFASALAZINE [Suspect]
     Active Substance: SULFASALAZINE
     Route: 058
  189. SULFASALAZINE [Suspect]
     Active Substance: SULFASALAZINE
     Route: 058
  190. SULFASALAZINE [Suspect]
     Active Substance: SULFASALAZINE
     Route: 058
  191. SULFASALAZINE [Suspect]
     Active Substance: SULFASALAZINE
     Route: 058
  192. SULFASALAZINE [Suspect]
     Active Substance: SULFASALAZINE
  193. SULFASALAZINE [Suspect]
     Active Substance: SULFASALAZINE
     Dosage: 1 GRAM, 1 EVERY 0.5 DAYS
     Route: 065
  194. SULFASALAZINE [Suspect]
     Active Substance: SULFASALAZINE
     Dosage: 1000 MILLIGRAM (1 EVERY 0.5 DAYS)
     Route: 048
  195. SULFASALAZINE [Suspect]
     Active Substance: SULFASALAZINE
     Dosage: UNK, QD
     Route: 048
  196. SULFASALAZINE [Suspect]
     Active Substance: SULFASALAZINE
     Route: 048
  197. SULFASALAZINE [Suspect]
     Active Substance: SULFASALAZINE
     Route: 065
  198. SULFASALAZINE [Suspect]
     Active Substance: SULFASALAZINE
     Dosage: 2 DOSAGE FORM, QD
     Route: 048
  199. SULFASALAZINE [Suspect]
     Active Substance: SULFASALAZINE
     Dosage: 2 GRAM, QD
     Route: 048
  200. SULFASALAZINE [Suspect]
     Active Substance: SULFASALAZINE
     Dosage: 200 MILLIGRAM
     Route: 048
  201. SULFASALAZINE [Suspect]
     Active Substance: SULFASALAZINE
     Route: 048
  202. SULFASALAZINE [Suspect]
     Active Substance: SULFASALAZINE
     Route: 048
  203. CALCIUM CHLORIDE [Suspect]
     Active Substance: CALCIUM CHLORIDE
  204. ACTEMRA [Suspect]
     Active Substance: TOCILIZUMAB
     Indication: Rheumatoid arthritis
     Route: 065
     Dates: end: 201511
  205. ACTEMRA [Suspect]
     Active Substance: TOCILIZUMAB
     Dosage: UNK, WEEKLY
     Route: 042
  206. ACTEMRA [Suspect]
     Active Substance: TOCILIZUMAB
     Route: 058
  207. ACTEMRA [Suspect]
     Active Substance: TOCILIZUMAB
     Route: 042
  208. ACTEMRA [Suspect]
     Active Substance: TOCILIZUMAB
     Route: 042
  209. ACTEMRA [Suspect]
     Active Substance: TOCILIZUMAB
     Dosage: 2912 MG, WEEKLY
     Route: 042
  210. ACTEMRA [Suspect]
     Active Substance: TOCILIZUMAB
     Route: 048
     Dates: start: 201511
  211. ACTEMRA [Suspect]
     Active Substance: TOCILIZUMAB
     Route: 048
  212. ACTEMRA [Suspect]
     Active Substance: TOCILIZUMAB
     Route: 058
  213. ACTEMRA [Suspect]
     Active Substance: TOCILIZUMAB
     Route: 042
  214. ACTEMRA [Suspect]
     Active Substance: TOCILIZUMAB
     Route: 058
  215. ACTEMRA [Suspect]
     Active Substance: TOCILIZUMAB
     Route: 042
  216. ACTEMRA [Suspect]
     Active Substance: TOCILIZUMAB
     Route: 016
  217. ACTEMRA [Suspect]
     Active Substance: TOCILIZUMAB
     Route: 061
  218. ACTEMRA [Suspect]
     Active Substance: TOCILIZUMAB
     Route: 016
  219. ACTEMRA [Suspect]
     Active Substance: TOCILIZUMAB
  220. ACTEMRA [Suspect]
     Active Substance: TOCILIZUMAB
  221. ACTEMRA [Suspect]
     Active Substance: TOCILIZUMAB
  222. ACTEMRA [Suspect]
     Active Substance: TOCILIZUMAB
     Route: 042
  223. ACTEMRA [Suspect]
     Active Substance: TOCILIZUMAB
     Route: 065
  224. ACTEMRA [Suspect]
     Active Substance: TOCILIZUMAB
     Route: 048
  225. ACTEMRA [Suspect]
     Active Substance: TOCILIZUMAB
     Route: 058
  226. ACTEMRA [Suspect]
     Active Substance: TOCILIZUMAB
     Route: 065
  227. ACTEMRA [Suspect]
     Active Substance: TOCILIZUMAB
     Route: 042
  228. ACTEMRA [Suspect]
     Active Substance: TOCILIZUMAB
     Route: 042
  229. ACTEMRA [Suspect]
     Active Substance: TOCILIZUMAB
     Route: 042
  230. ACTEMRA [Suspect]
     Active Substance: TOCILIZUMAB
  231. ACETAMINOPHEN [Suspect]
     Active Substance: ACETAMINOPHEN
     Route: 065
  232. ACETAMINOPHEN [Suspect]
     Active Substance: ACETAMINOPHEN
     Route: 065
  233. ACETAMINOPHEN [Suspect]
     Active Substance: ACETAMINOPHEN
  234. ACETAMINOPHEN [Suspect]
     Active Substance: ACETAMINOPHEN
  235. ACETAMINOPHEN [Suspect]
     Active Substance: ACETAMINOPHEN
     Route: 065
  236. ACETAMINOPHEN [Suspect]
     Active Substance: ACETAMINOPHEN
  237. ACETAMINOPHEN [Suspect]
     Active Substance: ACETAMINOPHEN
  238. ACETAMINOPHEN\OXYCODONE HYDROCHLORIDE [Suspect]
     Active Substance: ACETAMINOPHEN\OXYCODONE HYDROCHLORIDE
     Route: 065
  239. ACETAMINOPHEN\OXYCODONE HYDROCHLORIDE [Suspect]
     Active Substance: ACETAMINOPHEN\OXYCODONE HYDROCHLORIDE
     Route: 065
  240. ACETAMINOPHEN\OXYCODONE HYDROCHLORIDE [Suspect]
     Active Substance: ACETAMINOPHEN\OXYCODONE HYDROCHLORIDE
     Route: 065
  241. AIMOVIG [Suspect]
     Active Substance: ERENUMAB-AOOE
     Indication: Migraine
     Route: 065
  242. AIMOVIG [Suspect]
     Active Substance: ERENUMAB-AOOE
     Indication: Rheumatoid arthritis
  243. ALENDRONATE SODIUM\CHOLECALCIFEROL [Suspect]
     Active Substance: ALENDRONATE SODIUM\CHOLECALCIFEROL
     Indication: Rheumatoid arthritis
  244. ALENDRONATE SODIUM\CHOLECALCIFEROL [Suspect]
     Active Substance: ALENDRONATE SODIUM\CHOLECALCIFEROL
  245. ALENDRONIC ACID [Suspect]
     Active Substance: ALENDRONIC ACID
     Indication: Rheumatoid arthritis
     Route: 048
  246. ALENDRONIC ACID [Suspect]
     Active Substance: ALENDRONIC ACID
     Route: 048
  247. ALENDRONIC ACID [Suspect]
     Active Substance: ALENDRONIC ACID
     Route: 048
  248. ALENDRONIC ACID [Suspect]
     Active Substance: ALENDRONIC ACID
     Route: 048
  249. ALENDRONIC ACID [Suspect]
     Active Substance: ALENDRONIC ACID
     Route: 048
  250. ALENDRONIC ACID [Suspect]
     Active Substance: ALENDRONIC ACID
     Route: 048
  251. ALENDRONIC ACID [Suspect]
     Active Substance: ALENDRONIC ACID
     Route: 048
  252. ALENDRONIC ACID [Suspect]
     Active Substance: ALENDRONIC ACID
     Route: 065
  253. ALENDRONIC ACID [Suspect]
     Active Substance: ALENDRONIC ACID
     Route: 065
  254. ACETAMINOPHEN [Suspect]
     Active Substance: ACETAMINOPHEN
  255. DICLOFENAC SODIUM [Suspect]
     Active Substance: DICLOFENAC SODIUM
  256. DICLOFENAC SODIUM [Suspect]
     Active Substance: DICLOFENAC SODIUM
     Route: 058
  257. HYDROXYCHLOROQUINE SULFATE [Suspect]
     Active Substance: HYDROXYCHLOROQUINE SULFATE
     Indication: Rheumatoid arthritis
  258. LEFLUNOMIDE [Suspect]
     Active Substance: LEFLUNOMIDE
     Indication: Rheumatoid arthritis
     Route: 048
  259. PREDNISONE [Suspect]
     Active Substance: PREDNISONE
     Indication: Rheumatoid arthritis
  260. PREDNISONE [Suspect]
     Active Substance: PREDNISONE
     Indication: Condition aggravated
     Route: 048
  261. PREDNISONE [Suspect]
     Active Substance: PREDNISONE
     Indication: Synovitis
  262. PREDNISONE [Suspect]
     Active Substance: PREDNISONE
     Indication: Pemphigus
  263. PREDNISONE [Suspect]
     Active Substance: PREDNISONE
     Indication: Psoriatic arthropathy
     Route: 048
  264. PREDNISONE [Suspect]
     Active Substance: PREDNISONE
  265. PREDNISONE [Suspect]
     Active Substance: PREDNISONE
     Route: 042
  266. PREDNISONE [Suspect]
     Active Substance: PREDNISONE
  267. PREDNISONE [Suspect]
     Active Substance: PREDNISONE
     Route: 016
  268. PREDNISONE [Suspect]
     Active Substance: PREDNISONE
  269. PREDNISONE [Suspect]
     Active Substance: PREDNISONE
     Route: 048
  270. PREDNISONE [Suspect]
     Active Substance: PREDNISONE
     Route: 042
  271. PREDNISONE [Suspect]
     Active Substance: PREDNISONE
     Route: 048
  272. PREDNISONE [Suspect]
     Active Substance: PREDNISONE
     Route: 048
  273. PREDNISONE [Suspect]
     Active Substance: PREDNISONE
  274. PREDNISONE [Suspect]
     Active Substance: PREDNISONE
     Route: 048
  275. PREDNISONE [Suspect]
     Active Substance: PREDNISONE
  276. PREDNISONE [Suspect]
     Active Substance: PREDNISONE
     Route: 048
  277. PREDNISONE [Suspect]
     Active Substance: PREDNISONE
  278. PREDNISONE [Suspect]
     Active Substance: PREDNISONE
     Route: 048
  279. PREDNISONE [Suspect]
     Active Substance: PREDNISONE
  280. PREDNISONE [Suspect]
     Active Substance: PREDNISONE
  281. PREDNISONE [Suspect]
     Active Substance: PREDNISONE
     Route: 065
  282. ARAVA [Suspect]
     Active Substance: LEFLUNOMIDE
     Indication: Rheumatoid arthritis
     Route: 048
  283. ARAVA [Suspect]
     Active Substance: LEFLUNOMIDE
  284. ARAVA [Suspect]
     Active Substance: LEFLUNOMIDE
     Dosage: 20 MG, 1X/DAY
     Route: 048
  285. ARAVA [Suspect]
     Active Substance: LEFLUNOMIDE
     Route: 048
  286. ARAVA [Suspect]
     Active Substance: LEFLUNOMIDE
     Route: 048
  287. ARAVA [Suspect]
     Active Substance: LEFLUNOMIDE
     Route: 005
  288. ARAVA [Suspect]
     Active Substance: LEFLUNOMIDE
     Route: 048
  289. ARAVA [Suspect]
     Active Substance: LEFLUNOMIDE
     Route: 065
  290. ATOMOXETINE HYDROCHLORIDE [Suspect]
     Active Substance: ATOMOXETINE HYDROCHLORIDE
     Indication: Migraine
     Dosage: 1 DOSAGE FORM, QOD
     Route: 065
  291. ATOMOXETINE HYDROCHLORIDE [Suspect]
     Active Substance: ATOMOXETINE HYDROCHLORIDE
     Route: 065
  292. ATOMOXETINE HYDROCHLORIDE [Suspect]
     Active Substance: ATOMOXETINE HYDROCHLORIDE
     Route: 065
  293. ATOMOXETINE HYDROCHLORIDE [Suspect]
     Active Substance: ATOMOXETINE HYDROCHLORIDE
     Dosage: 2 DOSAGE FORM, QD
     Route: 065
  294. BENZOCAINE [Suspect]
     Active Substance: BENZOCAINE
  295. BERINERT [Suspect]
     Active Substance: HUMAN C1-ESTERASE INHIBITOR
     Route: 065
  296. BUTAMBEN [Suspect]
     Active Substance: BUTAMBEN
  297. BOTULINUM TOXIN TYPE A [Suspect]
     Active Substance: BOTULINUM TOXIN TYPE A
     Route: 065
  298. MINERALS\VITAMINS [Suspect]
     Active Substance: MINERALS\VITAMINS
  299. MINERALS\VITAMINS [Suspect]
     Active Substance: MINERALS\VITAMINS
     Route: 016
  300. CANDESARTAN [Suspect]
     Active Substance: CANDESARTAN
     Indication: Migraine
     Route: 048
  301. CERTOLIZUMAB PEGOL [Suspect]
     Active Substance: CERTOLIZUMAB PEGOL
     Indication: Rheumatoid arthritis
     Route: 058
  302. CERTOLIZUMAB PEGOL [Suspect]
     Active Substance: CERTOLIZUMAB PEGOL
     Indication: Psoriasis
     Route: 058
  303. CERTOLIZUMAB PEGOL [Suspect]
     Active Substance: CERTOLIZUMAB PEGOL
     Route: 058
  304. CERTOLIZUMAB PEGOL [Suspect]
     Active Substance: CERTOLIZUMAB PEGOL
     Route: 058
  305. CERTOLIZUMAB PEGOL [Suspect]
     Active Substance: CERTOLIZUMAB PEGOL
     Dosage: 400 MG, MONTHLY
     Route: 058
  306. CERTOLIZUMAB PEGOL [Suspect]
     Active Substance: CERTOLIZUMAB PEGOL
     Dosage: 1 DF, DAILY
     Route: 058
  307. CERTOLIZUMAB PEGOL [Suspect]
     Active Substance: CERTOLIZUMAB PEGOL
  308. CERTOLIZUMAB PEGOL [Suspect]
     Active Substance: CERTOLIZUMAB PEGOL
     Route: 058
  309. CERTOLIZUMAB PEGOL [Suspect]
     Active Substance: CERTOLIZUMAB PEGOL
     Route: 058
  310. CERTOLIZUMAB PEGOL [Suspect]
     Active Substance: CERTOLIZUMAB PEGOL
     Route: 065
  311. CETRIMIDE\CHLORHEXIDINE [Suspect]
     Active Substance: CETRIMIDE\CHLORHEXIDINE
  312. CETRIMONIUM BROMIDE [Suspect]
     Active Substance: CETRIMONIUM BROMIDE
  313. CHLORAPREP [Suspect]
     Active Substance: CHLORHEXIDINE GLUCONATE\ISOPROPYL ALCOHOL
  314. CHLORAPREP [Suspect]
     Active Substance: CHLORHEXIDINE GLUCONATE\ISOPROPYL ALCOHOL
     Route: 061
  315. CHLORAPREP [Suspect]
     Active Substance: CHLORHEXIDINE GLUCONATE\ISOPROPYL ALCOHOL
     Route: 048
  316. CHLORHEXIDINE ACETATE [Suspect]
     Active Substance: CHLORHEXIDINE ACETATE
  317. CHLORHEXIDINE GLUCONATE\ISOPROPYL ALCOHOL [Suspect]
     Active Substance: CHLORHEXIDINE GLUCONATE\ISOPROPYL ALCOHOL
  318. CHLORHEXIDINE GLUCONATE\ISOPROPYL ALCOHOL [Suspect]
     Active Substance: CHLORHEXIDINE GLUCONATE\ISOPROPYL ALCOHOL
  319. CHLORHEXIDINE GLUCONATE\ISOPROPYL ALCOHOL [Suspect]
     Active Substance: CHLORHEXIDINE GLUCONATE\ISOPROPYL ALCOHOL
     Route: 048
  320. CHLORHEXIDINE GLUCONATE\ISOPROPYL ALCOHOL [Suspect]
     Active Substance: CHLORHEXIDINE GLUCONATE\ISOPROPYL ALCOHOL
     Route: 002
  321. CLONIDINE [Suspect]
     Active Substance: CLONIDINE
  322. CODEINE [Suspect]
     Active Substance: CODEINE
  323. CORTISONE ACETATE [Suspect]
     Active Substance: CORTISONE ACETATE
     Indication: Rheumatoid arthritis
     Route: 061
  324. CORTISONE ACETATE [Suspect]
     Active Substance: CORTISONE ACETATE
  325. CORTISONE ACETATE [Suspect]
     Active Substance: CORTISONE ACETATE
  326. CORTISONE ACETATE [Suspect]
     Active Substance: CORTISONE ACETATE
  327. CORTISONE ACETATE [Suspect]
     Active Substance: CORTISONE ACETATE
     Route: 061
  328. CORTISONE ACETATE [Suspect]
     Active Substance: CORTISONE ACETATE
     Route: 048
  329. CORTISONE ACETATE [Suspect]
     Active Substance: CORTISONE ACETATE
  330. CORTISONE ACETATE [Suspect]
     Active Substance: CORTISONE ACETATE
     Route: 048
  331. CORTISONE ACETATE [Suspect]
     Active Substance: CORTISONE ACETATE
     Route: 061
  332. CORTISONE ACETATE [Suspect]
     Active Substance: CORTISONE ACETATE
  333. CORTISONE ACETATE [Suspect]
     Active Substance: CORTISONE ACETATE
     Route: 061
  334. CORTISONE ACETATE [Suspect]
     Active Substance: CORTISONE ACETATE
  335. CORTISONE ACETATE [Suspect]
     Active Substance: CORTISONE ACETATE
     Route: 048
  336. CORTISONE ACETATE [Suspect]
     Active Substance: CORTISONE ACETATE
     Route: 058
  337. COSENTYX [Suspect]
     Active Substance: SECUKINUMAB
     Indication: Psoriatic arthropathy
     Route: 067
  338. COSENTYX [Suspect]
     Active Substance: SECUKINUMAB
     Indication: Rheumatoid arthritis
  339. COSENTYX [Suspect]
     Active Substance: SECUKINUMAB
     Route: 040
  340. COSENTYX [Suspect]
     Active Substance: SECUKINUMAB
     Route: 065
  341. CIMZIA [Suspect]
     Active Substance: CERTOLIZUMAB PEGOL
     Indication: Rheumatoid arthritis
     Route: 058
  342. CIMZIA [Suspect]
     Active Substance: CERTOLIZUMAB PEGOL
     Indication: Psoriasis
     Route: 058
  343. CIMZIA [Suspect]
     Active Substance: CERTOLIZUMAB PEGOL
  344. CIMZIA [Suspect]
     Active Substance: CERTOLIZUMAB PEGOL
     Route: 058
  345. CIMZIA [Suspect]
     Active Substance: CERTOLIZUMAB PEGOL
  346. CIMZIA [Suspect]
     Active Substance: CERTOLIZUMAB PEGOL
     Route: 058
  347. CIMZIA [Suspect]
     Active Substance: CERTOLIZUMAB PEGOL
     Dosage: 1 DOSAGE FORM, QD
     Route: 065
  348. CIMZIA [Suspect]
     Active Substance: CERTOLIZUMAB PEGOL
     Route: 016
  349. CIMZIA [Suspect]
     Active Substance: CERTOLIZUMAB PEGOL
     Route: 065
  350. DESOXIMETASONE [Suspect]
     Active Substance: DESOXIMETASONE
     Indication: Rheumatoid arthritis
     Dosage: 25 MILLIGRAM, WEEKLY
     Route: 048
  351. DESOXIMETASONE [Suspect]
     Active Substance: DESOXIMETASONE
     Route: 065
  352. DESOXIMETASONE [Suspect]
     Active Substance: DESOXIMETASONE
     Route: 061
  353. DESOXIMETASONE [Suspect]
     Active Substance: DESOXIMETASONE
     Route: 048
  354. DESOXIMETASONE [Suspect]
     Active Substance: DESOXIMETASONE
     Route: 058
  355. DESOXIMETASONE [Suspect]
     Active Substance: DESOXIMETASONE
     Route: 048
  356. DESOXIMETASONE [Suspect]
     Active Substance: DESOXIMETASONE
     Route: 016
  357. DESOXIMETASONE [Suspect]
     Active Substance: DESOXIMETASONE
     Route: 058
  358. DESOXIMETASONE [Suspect]
     Active Substance: DESOXIMETASONE
     Route: 065
  359. DESOXIMETASONE [Suspect]
     Active Substance: DESOXIMETASONE
     Route: 048
  360. DESOXIMETASONE [Suspect]
     Active Substance: DESOXIMETASONE
     Route: 003
  361. DICLOFENAC SODIUM [Suspect]
     Active Substance: DICLOFENAC SODIUM
  362. DIPHENHYDRAMINE HYDROCHLORIDE [Suspect]
     Active Substance: DIPHENHYDRAMINE HYDROCHLORIDE
  363. DOMPERIDONE MALEATE [Suspect]
     Active Substance: DOMPERIDONE MALEATE
     Route: 065
  364. EMEND [Suspect]
     Active Substance: APREPITANT
     Indication: Rheumatoid arthritis
     Dosage: 2000 MG, 1X/DAY
     Route: 048
  365. EMEND [Suspect]
     Active Substance: APREPITANT
     Route: 065
  366. SULFISOMIDINE [Suspect]
     Active Substance: SULFISOMIDINE
  367. SULFISOMIDINE SODIUM [Suspect]
     Active Substance: SULFISOMIDINE SODIUM
  368. ENTYVIO [Suspect]
     Active Substance: VEDOLIZUMAB
  369. ERELZI [Suspect]
     Active Substance: ETANERCEPT-SZZS
     Indication: Rheumatoid arthritis
     Dosage: 50 MG, QW
     Route: 058
  370. ERELZI [Suspect]
     Active Substance: ETANERCEPT-SZZS
     Route: 058
  371. ERELZI [Suspect]
     Active Substance: ETANERCEPT-SZZS
     Dosage: 20 MG, 1X/DAY
     Route: 058
  372. ERELZI [Suspect]
     Active Substance: ETANERCEPT-SZZS
  373. ERELZI [Suspect]
     Active Substance: ETANERCEPT-SZZS
     Dosage: 50 MG, 1X/DAY
     Route: 058
  374. ERELZI [Suspect]
     Active Substance: ETANERCEPT-SZZS
     Dosage: 50 MG, WEEKLY
     Route: 065
  375. ERELZI [Suspect]
     Active Substance: ETANERCEPT-SZZS
     Route: 065
  376. ERELZI [Suspect]
     Active Substance: ETANERCEPT-SZZS
     Route: 058
  377. ERELZI [Suspect]
     Active Substance: ETANERCEPT-SZZS
     Route: 058
  378. ERELZI [Suspect]
     Active Substance: ETANERCEPT-SZZS
  379. ERELZI [Suspect]
     Active Substance: ETANERCEPT-SZZS
     Dosage: 20 MILLIGRAM, QWK
     Route: 058
  380. IRON\VITAMINS [Suspect]
     Active Substance: IRON\VITAMINS
  381. FOLIC ACID [Suspect]
     Active Substance: FOLIC ACID
     Indication: Rheumatoid arthritis
     Route: 065
  382. FOLIC ACID [Suspect]
     Active Substance: FOLIC ACID
     Route: 058
  383. FOLIC ACID [Suspect]
     Active Substance: FOLIC ACID
     Route: 048
  384. FOLIC ACID [Suspect]
     Active Substance: FOLIC ACID
  385. FOLIC ACID [Suspect]
     Active Substance: FOLIC ACID
  386. FOLIC ACID [Suspect]
     Active Substance: FOLIC ACID
  387. FOLIC ACID [Suspect]
     Active Substance: FOLIC ACID
  388. FOLIC ACID [Suspect]
     Active Substance: FOLIC ACID
  389. FOLIC ACID [Suspect]
     Active Substance: FOLIC ACID
  390. FOLIC ACID [Suspect]
     Active Substance: FOLIC ACID
  391. FOLIC ACID [Suspect]
     Active Substance: FOLIC ACID
  392. FOLIC ACID [Suspect]
     Active Substance: FOLIC ACID
  393. FOLIC ACID [Suspect]
     Active Substance: FOLIC ACID
  394. FOLIC ACID [Suspect]
     Active Substance: FOLIC ACID
  395. FOLIC ACID [Suspect]
     Active Substance: FOLIC ACID
  396. FOLIC ACID [Suspect]
     Active Substance: FOLIC ACID
     Route: 048
  397. FOLIC ACID [Suspect]
     Active Substance: FOLIC ACID
     Route: 048
  398. FOLIC ACID [Suspect]
     Active Substance: FOLIC ACID
     Route: 016
  399. FOLIC ACID [Suspect]
     Active Substance: FOLIC ACID
     Route: 048
  400. FOLIC ACID [Suspect]
     Active Substance: FOLIC ACID
  401. FOLIC ACID [Suspect]
     Active Substance: FOLIC ACID
  402. FOLIC ACID [Suspect]
     Active Substance: FOLIC ACID
     Route: 058
  403. FOLIC ACID [Suspect]
     Active Substance: FOLIC ACID
     Route: 058
  404. FOLIC ACID [Suspect]
     Active Substance: FOLIC ACID
     Route: 058
  405. FOLIC ACID [Suspect]
     Active Substance: FOLIC ACID
     Route: 065
  406. FOLIC ACID [Suspect]
     Active Substance: FOLIC ACID
     Route: 042
  407. FOLIC ACID [Suspect]
     Active Substance: FOLIC ACID
     Route: 065
  408. FOLIC ACID [Suspect]
     Active Substance: FOLIC ACID
     Route: 065
  409. FOLIC ACID [Suspect]
     Active Substance: FOLIC ACID
     Dosage: 1 MILLIGRAM, QD
     Route: 042
  410. FOLIC ACID [Suspect]
     Active Substance: FOLIC ACID
     Route: 065
  411. FOSAMAX [Suspect]
     Active Substance: ALENDRONATE SODIUM
     Indication: Rheumatoid arthritis
     Route: 048
  412. FOSAMAX [Suspect]
     Active Substance: ALENDRONATE SODIUM
     Route: 048
  413. FOSAMAX [Suspect]
     Active Substance: ALENDRONATE SODIUM
  414. FOSAMAX [Suspect]
     Active Substance: ALENDRONATE SODIUM
     Route: 048
  415. FOSAMAX [Suspect]
     Active Substance: ALENDRONATE SODIUM
     Route: 016
  416. FOSAMAX [Suspect]
     Active Substance: ALENDRONATE SODIUM
     Route: 065
  417. FRAMYCETIN SULFATE\SODIUM PROPIONATE [Suspect]
     Active Substance: FRAMYCETIN SULFATE\SODIUM PROPIONATE
  418. FLUMETHASONE PIVALATE [Suspect]
     Active Substance: FLUMETHASONE PIVALATE
     Indication: Rheumatoid arthritis
     Route: 058
  419. FLUMETHASONE PIVALATE [Suspect]
     Active Substance: FLUMETHASONE PIVALATE
     Route: 065
  420. FLUMETHASONE PIVALATE [Suspect]
     Active Substance: FLUMETHASONE PIVALATE
     Route: 058
  421. HAIR KERATIN AMINO ACIDS GOLD COMPLEX [Suspect]
     Active Substance: HAIR KERATIN AMINO ACIDS GOLD COMPLEX
  422. GOLIMUMAB [Suspect]
     Active Substance: GOLIMUMAB
     Indication: Rheumatoid arthritis
  423. GOLIMUMAB [Suspect]
     Active Substance: GOLIMUMAB
     Indication: Prostatic specific antigen
     Route: 058
  424. GOLIMUMAB [Suspect]
     Active Substance: GOLIMUMAB
     Route: 058
  425. GOLIMUMAB [Suspect]
     Active Substance: GOLIMUMAB
     Route: 058
  426. GRAMICIDIN\NEOMYCIN SULFATE [Suspect]
     Active Substance: GRAMICIDIN\NEOMYCIN SULFATE
  427. HUMIRA [Suspect]
     Active Substance: ADALIMUMAB
     Indication: Rheumatoid arthritis
     Route: 058
  428. HUMIRA [Suspect]
     Active Substance: ADALIMUMAB
     Indication: Psoriatic arthropathy
  429. HUMIRA [Suspect]
     Active Substance: ADALIMUMAB
     Route: 058
  430. HUMIRA [Suspect]
     Active Substance: ADALIMUMAB
  431. HUMIRA [Suspect]
     Active Substance: ADALIMUMAB
     Route: 058
  432. HUMIRA [Suspect]
     Active Substance: ADALIMUMAB
  433. HUMIRA [Suspect]
     Active Substance: ADALIMUMAB
     Dosage: 40 MG, 1X/DAY
     Route: 058
  434. HUMIRA [Suspect]
     Active Substance: ADALIMUMAB
     Dosage: 400 MG, 1X/DAY
     Route: 058
  435. HUMIRA [Suspect]
     Active Substance: ADALIMUMAB
     Route: 058
  436. HUMIRA [Suspect]
     Active Substance: ADALIMUMAB
     Route: 058
  437. HUMIRA [Suspect]
     Active Substance: ADALIMUMAB
     Route: 048
  438. HUMIRA [Suspect]
     Active Substance: ADALIMUMAB
     Route: 058
  439. HYALURONIDASE (HUMAN RECOMBINANT) [Suspect]
     Active Substance: HYALURONIDASE (HUMAN RECOMBINANT)
     Indication: Rheumatoid arthritis
     Route: 058
  440. HYALURONIDASE (HUMAN RECOMBINANT) [Suspect]
     Active Substance: HYALURONIDASE (HUMAN RECOMBINANT)
     Route: 042
  441. HYDROCORTISONE PROBUTATE [Suspect]
     Active Substance: HYDROCORTISONE PROBUTATE
  442. HYDROXYCHLOROQUINE [Suspect]
     Active Substance: HYDROXYCHLOROQUINE
     Indication: Rheumatoid arthritis
     Dosage: 400 MILLIGRAM, QD (1 EVERY 24 HOURS)
     Route: 048
  443. HYDROXYCHLOROQUINE [Suspect]
     Active Substance: HYDROXYCHLOROQUINE
  444. HYDROXYCHLOROQUINE [Suspect]
     Active Substance: HYDROXYCHLOROQUINE
     Route: 048
  445. HYDROXYCHLOROQUINE [Suspect]
     Active Substance: HYDROXYCHLOROQUINE
     Dosage: 420 MG, 1X/DAY
  446. HYDROXYCHLOROQUINE [Suspect]
     Active Substance: HYDROXYCHLOROQUINE
     Dosage: 420 MG, 1X/DAY
     Route: 048
  447. HYDROXYCHLOROQUINE [Suspect]
     Active Substance: HYDROXYCHLOROQUINE
     Dosage: 40 MG, 1X/DAY
     Route: 066
  448. HYDROXYCHLOROQUINE [Suspect]
     Active Substance: HYDROXYCHLOROQUINE
     Dosage: 400 MG, 1X/DAY
     Route: 066
  449. HYDROXYCHLOROQUINE [Suspect]
     Active Substance: HYDROXYCHLOROQUINE
  450. HYDROXYCHLOROQUINE [Suspect]
     Active Substance: HYDROXYCHLOROQUINE
  451. HYDROXYCHLOROQUINE [Suspect]
     Active Substance: HYDROXYCHLOROQUINE
  452. HYDROXYCHLOROQUINE [Suspect]
     Active Substance: HYDROXYCHLOROQUINE
     Dosage: 400 MG, 1X/DAY
     Route: 048
  453. HYDROXYCHLOROQUINE [Suspect]
     Active Substance: HYDROXYCHLOROQUINE
     Route: 016
  454. HYDROXYCHLOROQUINE [Suspect]
     Active Substance: HYDROXYCHLOROQUINE
     Route: 058
  455. HYDROXYCHLOROQUINE [Suspect]
     Active Substance: HYDROXYCHLOROQUINE
     Route: 048
  456. HYDROXYCHLOROQUINE [Suspect]
     Active Substance: HYDROXYCHLOROQUINE
     Dosage: 400 MG, 1X/DAY
  457. HYDROXYCHLOROQUINE [Suspect]
     Active Substance: HYDROXYCHLOROQUINE
     Dosage: 40 MG, 1X/DAY
     Route: 065
  458. HYDROXYCHLOROQUINE [Suspect]
     Active Substance: HYDROXYCHLOROQUINE
     Route: 048
  459. HYDROXYCHLOROQUINE [Suspect]
     Active Substance: HYDROXYCHLOROQUINE
     Route: 065
  460. HYDROXYCHLOROQUINE [Suspect]
     Active Substance: HYDROXYCHLOROQUINE
     Dosage: 420 MG, 1X/DAY
     Route: 065
  461. HYDROXYCHLOROQUINE [Suspect]
     Active Substance: HYDROXYCHLOROQUINE
     Dosage: 400 MG, 1X/DAY
     Route: 065
  462. HYDROXYCHLOROQUINE [Suspect]
     Active Substance: HYDROXYCHLOROQUINE
     Route: 065
  463. ISOPROPYL ALCOHOL [Suspect]
     Active Substance: ISOPROPYL ALCOHOL
     Route: 061
  464. ISOPROPYL ALCOHOL [Suspect]
     Active Substance: ISOPROPYL ALCOHOL
     Route: 048
  465. KEVZARA [Suspect]
     Active Substance: SARILUMAB
     Indication: Rheumatoid arthritis
  466. LAMICTAL [Suspect]
     Active Substance: LAMOTRIGINE
     Indication: Product used for unknown indication
     Route: 048
  467. MYRBETRIQ [Suspect]
     Active Substance: MIRABEGRON
     Dosage: 1 DF, 1X/DAY
     Route: 065
  468. LEFLUNOMIDE [Suspect]
     Active Substance: LEFLUNOMIDE
     Indication: Rheumatoid arthritis
     Route: 048
  469. LEFLUNOMIDE [Suspect]
     Active Substance: LEFLUNOMIDE
     Dosage: 20 MG, 1X/DAY
  470. LEFLUNOMIDE [Suspect]
     Active Substance: LEFLUNOMIDE
     Dosage: 10 MG, 1X/DAY
  471. LEFLUNOMIDE [Suspect]
     Active Substance: LEFLUNOMIDE
     Dosage: 20 MG, 1X/DAY
     Route: 048
  472. LEFLUNOMIDE [Suspect]
     Active Substance: LEFLUNOMIDE
     Route: 048
  473. LEFLUNOMIDE [Suspect]
     Active Substance: LEFLUNOMIDE
     Route: 048
  474. LEFLUNOMIDE [Suspect]
     Active Substance: LEFLUNOMIDE
     Dosage: 20 MG, 1X/DAY
     Route: 048
  475. LEFLUNOMIDE [Suspect]
     Active Substance: LEFLUNOMIDE
     Dosage: 20 MG, 1X/DAY
  476. LEFLUNOMIDE [Suspect]
     Active Substance: LEFLUNOMIDE
     Dosage: 10 MILLIGRAM, QD
     Route: 048
  477. FLUMETHASONE PIVALATE [Suspect]
     Active Substance: FLUMETHASONE PIVALATE
     Indication: Rheumatoid arthritis
     Route: 058
  478. FLUMETHASONE PIVALATE [Suspect]
     Active Substance: FLUMETHASONE PIVALATE
  479. MAGNESIUM [Suspect]
     Active Substance: MAGNESIUM
     Route: 065
  480. MEGLUMINE [Suspect]
     Active Substance: MEGLUMINE
     Indication: Migraine
     Route: 065
  481. MESALAMINE [Suspect]
     Active Substance: MESALAMINE
  482. METFORMIN HYDROCHLORIDE [Suspect]
     Active Substance: METFORMIN HYDROCHLORIDE
     Indication: Migraine
     Route: 065
  483. MINOCYCLINE [Suspect]
     Active Substance: MINOCYCLINE HYDROCHLORIDE
  484. MYCOPHENOLATE MOFETIL [Suspect]
     Active Substance: MYCOPHENOLATE MOFETIL
  485. MYOCHRYSINE [Suspect]
     Active Substance: GOLD SODIUM THIOMALATE
  486. NAPROXEN SODIUM [Suspect]
     Active Substance: NAPROXEN SODIUM
     Indication: Rheumatoid arthritis
     Dosage: 500 MG, 2X/DAY
  487. NAPROXEN SODIUM [Suspect]
     Active Substance: NAPROXEN SODIUM
     Dosage: 1000 MILLIGRAM, QD
     Route: 065
  488. NAPROXEN SODIUM [Suspect]
     Active Substance: NAPROXEN SODIUM
  489. NAPROXEN SODIUM [Suspect]
     Active Substance: NAPROXEN SODIUM
     Route: 065
  490. NITROFURAZONE [Suspect]
     Active Substance: NITROFURAZONE
  491. NUCALA [Suspect]
     Active Substance: MEPOLIZUMAB
     Route: 065
  492. ORENCIA [Suspect]
     Active Substance: ABATACEPT
     Indication: Rheumatoid arthritis
  493. ORENCIA [Suspect]
     Active Substance: ABATACEPT
     Route: 058
  494. ORENCIA [Suspect]
     Active Substance: ABATACEPT
     Route: 042
  495. ORENCIA [Suspect]
     Active Substance: ABATACEPT
     Dosage: 3 MG, 2X/DAY
     Route: 048
  496. ORENCIA [Suspect]
     Active Substance: ABATACEPT
     Route: 058
  497. ORENCIA [Suspect]
     Active Substance: ABATACEPT
     Route: 042
  498. ORENCIA [Suspect]
     Active Substance: ABATACEPT
     Route: 058
  499. ORENCIA [Suspect]
     Active Substance: ABATACEPT
     Dosage: 125 MG, WEEKLY
     Route: 058
  500. ORENCIA [Suspect]
     Active Substance: ABATACEPT
     Dosage: 17.857 MG, 1X/DAY
     Route: 058
  501. ORENCIA [Suspect]
     Active Substance: ABATACEPT
     Route: 042
  502. ORENCIA [Suspect]
     Active Substance: ABATACEPT
     Dosage: 125 MG, WEEKLY
     Route: 042
  503. ORENCIA [Suspect]
     Active Substance: ABATACEPT
  504. ORENCIA [Suspect]
     Active Substance: ABATACEPT
     Route: 041
  505. ORENCIA [Suspect]
     Active Substance: ABATACEPT
     Route: 065
  506. ORENCIA [Suspect]
     Active Substance: ABATACEPT
     Dosage: 30 MG, 2X/DAY
     Route: 065
  507. ORENCIA [Suspect]
     Active Substance: ABATACEPT
     Route: 013
  508. ORENCIA [Suspect]
     Active Substance: ABATACEPT
  509. ORENCIA [Suspect]
     Active Substance: ABATACEPT
     Route: 065
  510. ORENCIA [Suspect]
     Active Substance: ABATACEPT
     Route: 058
  511. ORENCIA [Suspect]
     Active Substance: ABATACEPT
     Route: 065
  512. ORENCIA [Suspect]
     Active Substance: ABATACEPT
     Dosage: 17.86 MILLIGRAM, QD
     Route: 042
  513. ORENCIA [Suspect]
     Active Substance: ABATACEPT
     Dosage: 17.86 MILLIGRAM, QD
     Route: 065
  514. ORENCIA [Suspect]
     Active Substance: ABATACEPT
     Route: 065
  515. ORENCIA [Suspect]
     Active Substance: ABATACEPT
     Route: 058
  516. ORENCIA [Suspect]
     Active Substance: ABATACEPT
     Dosage: 125 MILLIGRAM, QWK
     Route: 058
  517. ORENCIA [Suspect]
     Active Substance: ABATACEPT
     Dosage: 125 MILLIGRAM, QWK
     Route: 058
  518. ORENCIA [Suspect]
     Active Substance: ABATACEPT
     Route: 042
  519. ORENCIA [Suspect]
     Active Substance: ABATACEPT
     Dosage: 17.857 MILLIGRAM, QD
     Route: 058
  520. ORENCIA [Suspect]
     Active Substance: ABATACEPT
     Route: 065
  521. ORENCIA [Suspect]
     Active Substance: ABATACEPT
     Route: 065
  522. ORENCIA [Suspect]
     Active Substance: ABATACEPT
  523. ORENCIA [Suspect]
     Active Substance: ABATACEPT
     Route: 058
  524. OTEZLA [Suspect]
     Active Substance: APREMILAST
     Dosage: 3 MG, 2X/DAY
     Route: 048
  525. OTEZLA [Suspect]
     Active Substance: APREMILAST
  526. OTEZLA [Suspect]
     Active Substance: APREMILAST
  527. OTEZLA [Suspect]
     Active Substance: APREMILAST
     Dosage: 3 MG, 2X/DAY
  528. OTEZLA [Suspect]
     Active Substance: APREMILAST
     Dosage: 6 MG, 1X/DAY
     Route: 048
  529. OTEZLA [Suspect]
     Active Substance: APREMILAST
     Route: 048
  530. OXYCODONE [Suspect]
     Active Substance: OXYCODONE
  531. OXYCODONE [Suspect]
     Active Substance: OXYCODONE
     Route: 065
  532. PANTOPRAZOLE SODIUM ANHYDROUS [Suspect]
     Active Substance: PANTOPRAZOLE SODIUM ANHYDROUS
     Route: 016
  533. PANTOPRAZOLE SODIUM ANHYDROUS [Suspect]
     Active Substance: PANTOPRAZOLE SODIUM ANHYDROUS
  534. PANTOPRAZOLE SODIUM ANHYDROUS [Suspect]
     Active Substance: PANTOPRAZOLE SODIUM ANHYDROUS
     Route: 065
  535. PARA-AMINOSALICYLIC ACID [Suspect]
     Active Substance: AMINOSALICYLIC ACID
  536. PERIOGARD [Suspect]
     Active Substance: CHLORHEXIDINE GLUCONATE
  537. PERIOGARD [Suspect]
     Active Substance: CHLORHEXIDINE GLUCONATE
  538. PLAQUENIL [Suspect]
     Active Substance: HYDROXYCHLOROQUINE SULFATE
     Indication: Rheumatoid arthritis
     Dates: start: 2012
  539. PLAQUENIL [Suspect]
     Active Substance: HYDROXYCHLOROQUINE SULFATE
     Dosage: 400 MG, 1X/DAY
     Route: 048
  540. PLAQUENIL [Suspect]
     Active Substance: HYDROXYCHLOROQUINE SULFATE
     Route: 048
  541. PLAQUENIL [Suspect]
     Active Substance: HYDROXYCHLOROQUINE SULFATE
     Dosage: 400 MG, 1X/DAY
  542. PLAQUENIL [Suspect]
     Active Substance: HYDROXYCHLOROQUINE SULFATE
     Dosage: 1 DF, 1X/DAY
  543. PLAQUENIL [Suspect]
     Active Substance: HYDROXYCHLOROQUINE SULFATE
     Route: 048
  544. PLAQUENIL [Suspect]
     Active Substance: HYDROXYCHLOROQUINE SULFATE
     Dosage: 40 MG, 1X/DAY
  545. PLAQUENIL [Suspect]
     Active Substance: HYDROXYCHLOROQUINE SULFATE
     Dosage: 40 MG, 1X/DAY
     Route: 048
  546. PLAQUENIL [Suspect]
     Active Substance: HYDROXYCHLOROQUINE SULFATE
  547. PLAQUENIL [Suspect]
     Active Substance: HYDROXYCHLOROQUINE SULFATE
     Route: 048
  548. PSEUDOEPHEDRINE [Suspect]
     Active Substance: PSEUDOEPHEDRINE
     Indication: Rheumatoid arthritis
  549. PSEUDOEPHEDRINE [Suspect]
     Active Substance: PSEUDOEPHEDRINE
  550. QUETIAPINE FUMARATE [Suspect]
     Active Substance: QUETIAPINE FUMARATE
     Route: 048
  551. QUETIAPINE FUMARATE [Suspect]
     Active Substance: QUETIAPINE FUMARATE
     Route: 065
  552. QUETIAPINE FUMARATE [Suspect]
     Active Substance: QUETIAPINE FUMARATE
     Route: 048
  553. QUETIAPINE FUMARATE [Suspect]
     Active Substance: QUETIAPINE FUMARATE
  554. RAMIPRIL [Suspect]
     Active Substance: RAMIPRIL
     Indication: Rheumatoid arthritis
     Route: 042
  555. RAMIPRIL [Suspect]
     Active Substance: RAMIPRIL
     Route: 042
  556. RAMIPRIL [Suspect]
     Active Substance: RAMIPRIL
     Route: 065
  557. RAMIPRIL [Suspect]
     Active Substance: RAMIPRIL
     Route: 016
  558. RANITIDINE [Suspect]
     Active Substance: RANITIDINE
     Indication: Rheumatoid arthritis
     Route: 065
  559. CETIRIZINE HYDROCHLORIDE [Suspect]
     Active Substance: CETIRIZINE HYDROCHLORIDE
     Indication: Rheumatoid arthritis
  560. CETIRIZINE HYDROCHLORIDE\PSEUDOEPHEDRINE HYDROCHLORIDE [Suspect]
     Active Substance: CETIRIZINE HYDROCHLORIDE\PSEUDOEPHEDRINE HYDROCHLORIDE
     Indication: Rheumatoid arthritis
  561. CETIRIZINE HYDROCHLORIDE\PSEUDOEPHEDRINE HYDROCHLORIDE [Suspect]
     Active Substance: CETIRIZINE HYDROCHLORIDE\PSEUDOEPHEDRINE HYDROCHLORIDE
  562. CETIRIZINE HYDROCHLORIDE\PSEUDOEPHEDRINE HYDROCHLORIDE [Suspect]
     Active Substance: CETIRIZINE HYDROCHLORIDE\PSEUDOEPHEDRINE HYDROCHLORIDE
     Route: 065
  563. CETIRIZINE HYDROCHLORIDE [Suspect]
     Active Substance: CETIRIZINE HYDROCHLORIDE
     Indication: Rheumatoid arthritis
  564. CETIRIZINE HYDROCHLORIDE [Suspect]
     Active Substance: CETIRIZINE HYDROCHLORIDE
  565. CETIRIZINE HYDROCHLORIDE [Suspect]
     Active Substance: CETIRIZINE HYDROCHLORIDE
     Route: 048
  566. CETIRIZINE HYDROCHLORIDE [Suspect]
     Active Substance: CETIRIZINE HYDROCHLORIDE
  567. REMICADE [Suspect]
     Active Substance: INFLIXIMAB
     Indication: Rheumatoid arthritis
     Route: 042
  568. REMICADE [Suspect]
     Active Substance: INFLIXIMAB
     Indication: Colitis ulcerative
     Route: 058
  569. REMICADE [Suspect]
     Active Substance: INFLIXIMAB
     Route: 042
  570. REMICADE [Suspect]
     Active Substance: INFLIXIMAB
  571. REMICADE [Suspect]
     Active Substance: INFLIXIMAB
     Route: 040
  572. RITUXAN [Suspect]
     Active Substance: RITUXIMAB
     Indication: Rheumatoid arthritis
     Route: 042
  573. RITUXIMAB [Suspect]
     Active Substance: RITUXIMAB
     Indication: Rheumatoid arthritis
     Route: 042
  574. RITUXIMAB [Suspect]
     Active Substance: RITUXIMAB
     Route: 042
  575. RITUXIMAB [Suspect]
     Active Substance: RITUXIMAB
     Route: 065
  576. RITUXIMAB [Suspect]
     Active Substance: RITUXIMAB
     Route: 042
  577. RITUXIMAB [Suspect]
     Active Substance: RITUXIMAB
     Route: 048
  578. RITUXIMAB [Suspect]
     Active Substance: RITUXIMAB
     Route: 042
  579. RITUXIMAB [Suspect]
     Active Substance: RITUXIMAB
     Route: 058
  580. RITUXIMAB [Suspect]
     Active Substance: RITUXIMAB
     Route: 042
  581. RITUXIMAB [Suspect]
     Active Substance: RITUXIMAB
     Route: 058
  582. RITUXIMAB [Suspect]
     Active Substance: RITUXIMAB
     Route: 042
  583. RITUXIMAB [Suspect]
     Active Substance: RITUXIMAB
     Route: 042
  584. RITUXIMAB [Suspect]
     Active Substance: RITUXIMAB
     Route: 065
  585. HYALURONIDASE (HUMAN RECOMBINANT)\RITUXIMAB [Suspect]
     Active Substance: HYALURONIDASE (HUMAN RECOMBINANT)\RITUXIMAB
     Indication: Rheumatoid arthritis
     Route: 058
  586. HYALURONIDASE (HUMAN RECOMBINANT)\RITUXIMAB [Suspect]
     Active Substance: HYALURONIDASE (HUMAN RECOMBINANT)\RITUXIMAB
     Route: 042
  587. DIETARY SUPPLEMENT [Suspect]
     Active Substance: DIETARY SUPPLEMENT
  588. SARILUMAB [Suspect]
     Active Substance: SARILUMAB
     Indication: Rheumatoid arthritis
  589. SIMPONI [Suspect]
     Active Substance: GOLIMUMAB
     Indication: Rheumatoid arthritis
     Route: 058
  590. SIMPONI [Suspect]
     Active Substance: GOLIMUMAB
     Indication: Prostatic specific antigen
     Dosage: 50 MG, MONTHLY
     Route: 058
  591. SIMPONI [Suspect]
     Active Substance: GOLIMUMAB
     Route: 042
  592. SIMPONI [Suspect]
     Active Substance: GOLIMUMAB
     Route: 065
  593. SIMPONI [Suspect]
     Active Substance: GOLIMUMAB
     Route: 052
  594. SIMPONI [Suspect]
     Active Substance: GOLIMUMAB
     Dosage: 50 MG, 1X/DAY
     Route: 058
  595. SIMPONI [Suspect]
     Active Substance: GOLIMUMAB
     Dosage: 50 MG, MONTHLY
  596. SIMPONI [Suspect]
     Active Substance: GOLIMUMAB
     Route: 065
  597. GOLD SODIUM THIOMALATE [Suspect]
     Active Substance: GOLD SODIUM THIOMALATE
     Indication: Rheumatoid arthritis
  598. GOLD SODIUM THIOMALATE [Suspect]
     Active Substance: GOLD SODIUM THIOMALATE
     Dosage: 300 MG, 1X/DAY (QD)
     Route: 065
  599. SODIUM FLUORIDE [Suspect]
     Active Substance: SODIUM FLUORIDE
  600. STELARA [Suspect]
     Active Substance: USTEKINUMAB
     Route: 058
  601. STELARA [Suspect]
     Active Substance: USTEKINUMAB
  602. STELARA [Suspect]
     Active Substance: USTEKINUMAB
     Route: 042
  603. STELARA [Suspect]
     Active Substance: USTEKINUMAB
     Route: 058
  604. STELARA [Suspect]
     Active Substance: USTEKINUMAB
     Route: 065
  605. STELARA [Suspect]
     Active Substance: USTEKINUMAB
     Route: 065
  606. SULFAMETHOXAZOLE AND TRIMETHOPRIM [Suspect]
     Active Substance: SULFAMETHOXAZOLE\TRIMETHOPRIM
  607. SULFAMETHOXAZOLE AND TRIMETHOPRIM [Suspect]
     Active Substance: SULFAMETHOXAZOLE\TRIMETHOPRIM
  608. SULFATHALIDINE [Suspect]
     Active Substance: PHTHALYLSULFATHIAZOLE
     Indication: Rheumatoid arthritis
  609. SULFATHALIDINE [Suspect]
     Active Substance: PHTHALYLSULFATHIAZOLE
     Dosage: 400 MG, 1X/DAY
  610. SULFATHALIDINE [Suspect]
     Active Substance: PHTHALYLSULFATHIAZOLE
     Route: 048
  611. SULFATHALIDINE [Suspect]
     Active Substance: PHTHALYLSULFATHIAZOLE
  612. SULFATHALIDINE [Suspect]
     Active Substance: PHTHALYLSULFATHIAZOLE
     Dosage: 500 MG, 1X/DAY
     Route: 048
  613. SULFATHALIDINE [Suspect]
     Active Substance: PHTHALYLSULFATHIAZOLE
     Dosage: 1000 MG, 2X/DAY
     Route: 016
  614. SULFATHALIDINE [Suspect]
     Active Substance: PHTHALYLSULFATHIAZOLE
     Route: 016
  615. SULFATHALIDINE [Suspect]
     Active Substance: PHTHALYLSULFATHIAZOLE
     Route: 042
  616. SULFATHALIDINE [Suspect]
     Active Substance: PHTHALYLSULFATHIAZOLE
     Dosage: 1000 MG, 2X/DAY
  617. SULFATHALIDINE [Suspect]
     Active Substance: PHTHALYLSULFATHIAZOLE
     Dosage: 2000 MG, 2X/DAY
     Route: 048
  618. SULFATHALIDINE [Suspect]
     Active Substance: PHTHALYLSULFATHIAZOLE
     Dosage: 500 MG, 2X/DAY
     Route: 048
  619. SULFATHALIDINE [Suspect]
     Active Substance: PHTHALYLSULFATHIAZOLE
     Route: 048
  620. SULFATHALIDINE [Suspect]
     Active Substance: PHTHALYLSULFATHIAZOLE
     Route: 048
  621. SULFATHALIDINE [Suspect]
     Active Substance: PHTHALYLSULFATHIAZOLE
     Dosage: 500 MG, 2X/DAY
  622. SULFATHALIDINE [Suspect]
     Active Substance: PHTHALYLSULFATHIAZOLE
     Dosage: 1000 MG, 2X/DAY
     Route: 048
  623. SULFATHALIDINE [Suspect]
     Active Substance: PHTHALYLSULFATHIAZOLE
     Dosage: 400 MG, 1X/DAY
     Route: 065
  624. SULFATHIAZOLE [Suspect]
     Active Substance: SULFATHIAZOLE
  625. THYMOL [Suspect]
     Active Substance: THYMOL
  626. TOCILIZUMAB [Suspect]
     Active Substance: TOCILIZUMAB
     Indication: Rheumatoid arthritis
     Route: 058
  627. TOCILIZUMAB [Suspect]
     Active Substance: TOCILIZUMAB
     Route: 042
  628. TOCILIZUMAB [Suspect]
     Active Substance: TOCILIZUMAB
     Route: 016
  629. TOCILIZUMAB [Suspect]
     Active Substance: TOCILIZUMAB
     Route: 058
  630. TOCILIZUMAB [Suspect]
     Active Substance: TOCILIZUMAB
  631. TOPAMAX [Suspect]
     Active Substance: TOPIRAMATE
     Indication: Migraine
     Dosage: 25 MG, 2X/DAY
     Route: 048
  632. TOPAMAX [Suspect]
     Active Substance: TOPIRAMATE
     Dosage: 25 MG, 1X/DAY
     Route: 048
  633. TOPAMAX [Suspect]
     Active Substance: TOPIRAMATE
     Dosage: 1 DF, 1X/DAY
     Route: 048
  634. TOPAMAX [Suspect]
     Active Substance: TOPIRAMATE
     Dosage: 3 MG, 1X/DAY
     Route: 065
  635. TOPAMAX [Suspect]
     Active Substance: TOPIRAMATE
     Dosage: 1 DF, 2X/DAY
     Route: 048
  636. TOPICORT [Suspect]
     Active Substance: DESOXIMETASONE
     Indication: Rheumatoid arthritis
     Route: 048
  637. TOPICORT [Suspect]
     Active Substance: DESOXIMETASONE
  638. TOPICORT [Suspect]
     Active Substance: DESOXIMETASONE
     Route: 058
  639. HYDROCORTISONE ACETATE [Suspect]
     Active Substance: HYDROCORTISONE ACETATE
     Indication: Rheumatoid arthritis
     Route: 061
  640. HYDROCORTISONE ACETATE [Suspect]
     Active Substance: HYDROCORTISONE ACETATE
     Route: 058
  641. HYDROCORTISONE ACETATE [Suspect]
     Active Substance: HYDROCORTISONE ACETATE
     Route: 048
  642. HYDROCORTISONE ACETATE [Suspect]
     Active Substance: HYDROCORTISONE ACETATE
  643. TOPIRAMATE [Suspect]
     Active Substance: TOPIRAMATE
     Indication: Migraine
     Dosage: 3 MG, QD
     Route: 065
  644. TOPIRAMATE [Suspect]
     Active Substance: TOPIRAMATE
     Dosage: 2 DOSAGE FORM, QD
     Route: 065
  645. TOPIRAMATE [Suspect]
     Active Substance: TOPIRAMATE
     Dosage: 25 MILLIGRAM, QD
     Route: 065
  646. TOPIRAMATE [Suspect]
     Active Substance: TOPIRAMATE
     Route: 065
  647. TOPIRAMATE [Suspect]
     Active Substance: TOPIRAMATE
     Dosage: 25 MG, BID
     Route: 048
  648. TOPIRAMATE [Suspect]
     Active Substance: TOPIRAMATE
     Dosage: 25 MG, QD
     Route: 048
  649. TOPIRAMATE [Suspect]
     Active Substance: TOPIRAMATE
     Dosage: 1 DOSAGE FORM, QD
     Route: 065
  650. TRAMADOL [Suspect]
     Active Substance: TRAMADOL
     Route: 065
  651. DIETARY SUPPLEMENT\HERBALS [Suspect]
     Active Substance: DIETARY SUPPLEMENT\HERBALS
     Route: 048
  652. HYDROCORTISONE BUTYRATE [Suspect]
     Active Substance: HYDROCORTISONE BUTYRATE
     Indication: Rheumatoid arthritis
     Route: 065
  653. DICLOFENAC SODIUM [Suspect]
     Active Substance: DICLOFENAC SODIUM
     Route: 065
  654. NAPROXEN [Suspect]
     Active Substance: NAPROXEN
     Dosage: 1000 MG, 1X/DAY
     Route: 065
  655. GOLD [Suspect]
     Active Substance: GOLD
     Route: 065
  656. CALCIUM CARBONATE\CHOLECALCIFEROL [Suspect]
     Active Substance: CALCIUM CARBONATE\CHOLECALCIFEROL
     Route: 065
  657. ACETAMINOPHEN AND CODEINE [Suspect]
     Active Substance: ACETAMINOPHEN\CODEINE PHOSPHATE
     Route: 065
  658. CETIRIZINE HYDROCHLORIDE [Suspect]
     Active Substance: CETIRIZINE HYDROCHLORIDE
     Indication: Rheumatoid arthritis
     Dosage: 10 MG, 1X/DAY
     Route: 065
  659. CETIRIZINE HYDROCHLORIDE [Suspect]
     Active Substance: CETIRIZINE HYDROCHLORIDE
     Route: 065
  660. TRIAMCINOLONE ACETONIDE [Suspect]
     Active Substance: TRIAMCINOLONE ACETONIDE
     Indication: Rheumatoid arthritis
     Route: 014
  661. DICLOFENAC DIETHYLAMINE [Suspect]
     Active Substance: DICLOFENAC DIETHYLAMINE
     Route: 065
  662. DICLOFENAC DIETHYLAMINE [Suspect]
     Active Substance: DICLOFENAC DIETHYLAMINE
     Route: 065
  663. PSEUDOEPHEDRINE HYDROCHLORIDE [Suspect]
     Active Substance: PSEUDOEPHEDRINE HYDROCHLORIDE
     Route: 065
  664. CHLORHEXIDINE GLUCONATE [Suspect]
     Active Substance: CHLORHEXIDINE GLUCONATE
     Route: 065
  665. HYDROXYCHLOROQUINE SULFATE [Suspect]
     Active Substance: HYDROXYCHLOROQUINE SULFATE
     Indication: Rheumatoid arthritis
     Dosage: 40 MG, 1X/DAY
     Route: 065
  666. TRICLOSAN [Suspect]
     Active Substance: TRICLOSAN
  667. PHTHALYLSULFATHIAZOLE [Suspect]
     Active Substance: PHTHALYLSULFATHIAZOLE
     Indication: Rheumatoid arthritis
     Route: 065
  668. PHTHALYLSULFATHIAZOLE [Suspect]
     Active Substance: PHTHALYLSULFATHIAZOLE
     Route: 065
  669. POVIDONE-IODINE [Suspect]
     Active Substance: POVIDONE-IODINE
     Route: 065
  670. GOLD SODIUM THIOMALATE [Suspect]
     Active Substance: GOLD SODIUM THIOMALATE
  671. BUTRANS [Suspect]
     Active Substance: BUPRENORPHINE
     Route: 065
  672. TYROTHRICIN [Suspect]
     Active Substance: TYROTHRICIN
  673. USTEKINUMAB [Suspect]
     Active Substance: USTEKINUMAB
     Route: 042
  674. USTEKINUMAB [Suspect]
     Active Substance: USTEKINUMAB
     Route: 058
  675. USTEKINUMAB [Suspect]
     Active Substance: USTEKINUMAB
     Route: 058
  676. USTEKINUMAB [Suspect]
     Active Substance: USTEKINUMAB
     Route: 042
  677. USTEKINUMAB [Suspect]
     Active Substance: USTEKINUMAB
     Route: 065
  678. USTEKINUMAB [Suspect]
     Active Substance: USTEKINUMAB
     Route: 042
  679. VITAMIN C [Suspect]
     Active Substance: ASCORBIC ACID
  680. VITAMIN C [Suspect]
     Active Substance: ASCORBIC ACID
     Route: 065
  681. VITAMIN D3 [Suspect]
     Active Substance: CHOLECALCIFEROL
  682. VITAMIN D3 [Suspect]
     Active Substance: CHOLECALCIFEROL
     Route: 016
  683. DICLOFENAC DIETHYLAMINE [Suspect]
     Active Substance: DICLOFENAC DIETHYLAMINE
  684. PREDNISONE [Suspect]
     Active Substance: PREDNISONE
     Indication: Rheumatoid arthritis
     Route: 048
  685. ZYRTEC-D [Suspect]
     Active Substance: CETIRIZINE HYDROCHLORIDE\PSEUDOEPHEDRINE HYDROCHLORIDE
  686. ACETAMINOPHEN\CODEINE PHOSPHATE [Suspect]
     Active Substance: ACETAMINOPHEN\CODEINE PHOSPHATE
     Indication: Rheumatoid arthritis
     Route: 065
  687. MARVELON [Suspect]
     Active Substance: DESOGESTREL\ETHINYL ESTRADIOL
     Route: 065
  688. AZULFIDINE [Suspect]
     Active Substance: SULFASALAZINE
  689. CALCIUM CARBONATE [Suspect]
     Active Substance: CALCIUM CARBONATE
     Route: 065
  690. CHLORHEXIDINE GLUCONATE\CLOTRIMAZOLE\ISOPROPYL ALCOHOL [Suspect]
     Active Substance: CHLORHEXIDINE GLUCONATE\CLOTRIMAZOLE\ISOPROPYL ALCOHOL
  691. IODINE [Suspect]
     Active Substance: IODINE
  692. DICLOFENAC DIETHYLAMINE [Suspect]
     Active Substance: DICLOFENAC DIETHYLAMINE
  693. METHYLCOBALAMIN [Suspect]
     Active Substance: METHYLCOBALAMIN
  694. LYSINE HYDROCHLORIDE [Suspect]
     Active Substance: LYSINE HYDROCHLORIDE
  695. CINRYZE [Suspect]
     Active Substance: HUMAN C1-ESTERASE INHIBITOR
  696. DEXPANTHENOL [Suspect]
     Active Substance: DEXPANTHENOL
  697. LANSOPRAZOLE [Suspect]
     Active Substance: LANSOPRAZOLE
     Route: 065
  698. ASACOL [Suspect]
     Active Substance: MESALAMINE
     Route: 065
  699. APREMILAST [Suspect]
     Active Substance: APREMILAST
  700. APREMILAST [Suspect]
     Active Substance: APREMILAST
     Dosage: 6 MG, 1X/DAY
     Route: 065
  701. TRIAMCINOLONE [Suspect]
     Active Substance: TRIAMCINOLONE
  702. FISH OIL [Concomitant]
     Active Substance: FISH OIL
     Route: 065
  703. ACETAMINOPHEN\CAFFEINE\CODEINE PHOSPHATE [Concomitant]
     Active Substance: ACETAMINOPHEN\CAFFEINE\CODEINE PHOSPHATE
     Route: 065
  704. ATIVAN [Concomitant]
     Active Substance: LORAZEPAM
     Indication: Anxiety
  705. ATIVAN [Concomitant]
     Active Substance: LORAZEPAM
     Route: 065
  706. AZATHIOPRINE [Concomitant]
     Active Substance: AZATHIOPRINE
  707. CAFFEINE [Concomitant]
     Active Substance: CAFFEINE
  708. CAFFEINE [Concomitant]
     Active Substance: CAFFEINE
  709. CALCIUM GLUCONATE [Concomitant]
     Active Substance: CALCIUM GLUCONATE
     Route: 065
  710. CYANOCOBALAMIN [Concomitant]
     Active Substance: CYANOCOBALAMIN
     Route: 065
  711. DEXAMETHASONE [Concomitant]
     Active Substance: DEXAMETHASONE
  712. DICLOFENAC POTASSIUM [Concomitant]
     Active Substance: DICLOFENAC POTASSIUM
     Indication: Rheumatoid arthritis
     Route: 065
  713. DICLOFENAC POTASSIUM [Concomitant]
     Active Substance: DICLOFENAC POTASSIUM
     Route: 065
  714. DICLOFENAC POTASSIUM [Concomitant]
     Active Substance: DICLOFENAC POTASSIUM
     Route: 048
  715. ELBASVIR [Concomitant]
     Active Substance: ELBASVIR
  716. ERYTHROMYCIN [Concomitant]
     Active Substance: ERYTHROMYCIN
  717. ETHINYL ESTRADIOL [Concomitant]
     Active Substance: ETHINYL ESTRADIOL
  718. GLUCOSAMINE [Concomitant]
     Active Substance: GLUCOSAMINE
     Route: 065
  719. GLUCOSAMINE [Concomitant]
     Active Substance: GLUCOSAMINE
  720. IBUPROFEN [Concomitant]
     Active Substance: IBUPROFEN
     Route: 065
  721. LANSOPRAZOLE [Concomitant]
     Active Substance: LANSOPRAZOLE
     Dosage: 30 MG, BID
  722. LANSOPRAZOLE [Concomitant]
     Active Substance: LANSOPRAZOLE
     Dosage: 30 MG, BID
  723. LEVOTHYROXINE SODIUM [Concomitant]
     Active Substance: LEVOTHYROXINE SODIUM
     Indication: Product used for unknown indication
     Route: 065
  724. LISINOPRIL [Concomitant]
     Active Substance: LISINOPRIL
     Route: 065
  725. LISINOPRIL [Concomitant]
     Active Substance: LISINOPRIL
     Route: 065
  726. LISINOPRIL [Concomitant]
     Active Substance: LISINOPRIL
     Route: 048
  727. LORAZEPAM [Concomitant]
     Active Substance: LORAZEPAM
     Route: 065
  728. MORPHINE [Concomitant]
     Active Substance: MORPHINE
     Indication: Rheumatoid arthritis
     Route: 042
  729. MELOXICAM [Concomitant]
     Active Substance: MELOXICAM
     Route: 065
  730. PANTOPRAZOLE SODIUM [Concomitant]
     Active Substance: PANTOPRAZOLE SODIUM
  731. PANTOPRAZOLE SODIUM [Concomitant]
     Active Substance: PANTOPRAZOLE SODIUM
  732. PANTOPRAZOLE SODIUM [Concomitant]
     Active Substance: PANTOPRAZOLE SODIUM
  733. PIROXICAM [Concomitant]
     Active Substance: PIROXICAM
     Route: 065
  734. PREDNISOLONE [Concomitant]
     Active Substance: PREDNISOLONE
     Indication: Product used for unknown indication
     Route: 065
  735. PREVACID [Concomitant]
     Active Substance: LANSOPRAZOLE
     Dosage: 30 MG, BID REGIMEN DOSE UNIT: MILLIGRAM
     Route: 065
  736. PREVACID [Concomitant]
     Active Substance: LANSOPRAZOLE
     Dosage: 30 MG, BID
     Route: 065
  737. QUETIAPINE [Concomitant]
     Active Substance: QUETIAPINE
     Route: 065
  738. QUETIAPINE [Concomitant]
     Active Substance: QUETIAPINE
     Route: 065
  739. QUETIAPINE [Concomitant]
     Active Substance: QUETIAPINE
     Route: 065
  740. QUETIAPINE [Concomitant]
     Active Substance: QUETIAPINE
     Route: 065
  741. RISEDRONATE SODIUM [Concomitant]
     Active Substance: RISEDRONATE SODIUM
     Route: 065
  742. TRIMETHOPRIM [Concomitant]
     Active Substance: TRIMETHOPRIM
  743. TYLENOL [Concomitant]
     Active Substance: ACETAMINOPHEN
  744. TYLENOL [Concomitant]
     Active Substance: ACETAMINOPHEN
  745. TYLENOL [Concomitant]
     Active Substance: ACETAMINOPHEN
  746. ALBUTEROL SULFATE [Concomitant]
     Active Substance: ALBUTEROL SULFATE
  747. ZESTRIL [Concomitant]
     Active Substance: LISINOPRIL
  748. ZOPICLONE [Concomitant]
     Active Substance: ZOPICLONE
  749. DOCONEXENT [Concomitant]
     Active Substance: DOCONEXENT
  750. ICOSAPENT [Concomitant]
     Active Substance: ICOSAPENT
  751. TEMAZEPAM [Concomitant]
     Active Substance: TEMAZEPAM
  752. CALCIUM GLUBIONATE [Concomitant]
     Active Substance: CALCIUM GLUBIONATE
     Route: 065
  753. CALCIUM [Concomitant]
     Active Substance: CALCIUM
     Route: 065

REACTIONS (49)
  - Hypercholesterolaemia [Fatal]
  - Crohn^s disease [Fatal]
  - Condition aggravated [Fatal]
  - Deep vein thrombosis postoperative [Fatal]
  - Delirium [Fatal]
  - Depression [Fatal]
  - Dislocation of vertebra [Fatal]
  - Duodenal ulcer perforation [Fatal]
  - Epilepsy [Fatal]
  - Helicobacter infection [Fatal]
  - Pneumonia [Fatal]
  - Maternal exposure during pregnancy [Fatal]
  - Neoplasm progression [Fatal]
  - Hepatic cirrhosis [Fatal]
  - Road traffic accident [Fatal]
  - Sleep disorder due to general medical condition, insomnia type [Fatal]
  - Feeling hot [Fatal]
  - Wound infection [Fatal]
  - Blepharospasm [Fatal]
  - Off label use [Fatal]
  - Drug ineffective [Fatal]
  - Hypertension [Fatal]
  - Fibromyalgia [Fatal]
  - Infusion related reaction [Fatal]
  - Lower limb fracture [Fatal]
  - Lupus vulgaris [Fatal]
  - Peripheral venous disease [Fatal]
  - Pemphigus [Fatal]
  - Pericarditis [Fatal]
  - Rheumatoid arthritis [Fatal]
  - Facet joint syndrome [Fatal]
  - Type 2 diabetes mellitus [Fatal]
  - Upper respiratory tract infection [Fatal]
  - Urticaria [Fatal]
  - Intentional product use issue [Fatal]
  - Psoriatic arthropathy [Fatal]
  - Overlap syndrome [Fatal]
  - Drug-induced liver injury [Fatal]
  - Contraindicated product administered [Fatal]
  - Osteoporosis [Fatal]
  - Incorrect route of product administration [Fatal]
  - Gastrooesophageal reflux disease [Fatal]
  - Systemic lupus erythematosus [Fatal]
  - Osteoarthritis [Fatal]
  - Drug hypersensitivity [Fatal]
  - Retinitis [Fatal]
  - Prescribed overdose [Not Recovered/Not Resolved]
  - Fatigue [Not Recovered/Not Resolved]
  - Coeliac disease [Unknown]
